FAERS Safety Report 10268806 (Version 1)
Quarter: 2014Q2

REPORT INFORMATION
  Report Type: Spontaneous
  Country: US (occurrence: US)
  Receive Date: 20140630
  Receipt Date: 20140630
  Transmission Date: 20141212
  Serious: Yes (Hospitalization)
  Sender: FDA-Public Use
  Company Number: US-GLAXOSMITHKLINE-A1078421A

PATIENT
  Age: 48 Year
  Sex: Male

DRUGS (5)
  1. PAXIL [Suspect]
     Indication: ANXIETY
     Route: 065
  2. VENTOLIN [Suspect]
     Indication: ASTHMA
     Route: 055
  3. ATIVAN [Suspect]
     Indication: ANXIETY
     Route: 065
  4. DULERA [Concomitant]
  5. NITROGLYCERIN [Concomitant]

REACTIONS (5)
  - Panic attack [Unknown]
  - Ill-defined disorder [Unknown]
  - Anxiety [Unknown]
  - Nervousness [Unknown]
  - Therapeutic response decreased [Unknown]
